FAERS Safety Report 18991418 (Version 1)
Quarter: 2021Q1

REPORT INFORMATION
  Report Type: Other
  Country: GB (occurrence: GB)
  Receive Date: 20210310
  Receipt Date: 20210310
  Transmission Date: 20210420
  Serious: No
  Sender: FDA-Public Use
  Company Number: GB-LUPIN PHARMACEUTICALS INC.-2021-02690

PATIENT
  Age: 87 Year
  Sex: Female
  Weight: 63 kg

DRUGS (3)
  1. MEMANTINE. [Suspect]
     Active Substance: MEMANTINE
     Indication: MIXED DEMENTIA
     Dosage: 5 MILLIGRAM
     Route: 048
  2. BIMATOPROST. [Concomitant]
     Active Substance: BIMATOPROST
     Indication: ILL-DEFINED DISORDER
     Dosage: UNK
     Route: 065
  3. FOLIC ACID. [Concomitant]
     Active Substance: FOLIC ACID
     Indication: ILL-DEFINED DISORDER
     Dosage: UNK
     Route: 065

REACTIONS (1)
  - Oedema [Not Recovered/Not Resolved]
